FAERS Safety Report 15951777 (Version 1)
Quarter: 2019Q1

REPORT INFORMATION
  Report Type: Report from Study
  Country: US (occurrence: US)
  Receive Date: 20190212
  Receipt Date: 20190212
  Transmission Date: 20190417
  Serious: Yes (Hospitalization, Other)
  Sender: FDA-Public Use
  Company Number: PHEH2019US005976

PATIENT
  Sex: Male
  Weight: 97.9 kg

DRUGS (67)
  1. FAMOTIDINE. [Concomitant]
     Active Substance: FAMOTIDINE
     Dosage: 20 MG, QD
     Route: 048
     Dates: start: 20190101
  2. FERROUS SULFATE. [Concomitant]
     Active Substance: FERROUS SULFATE
     Dosage: 325 MG, QD
     Route: 048
     Dates: start: 20181230
  3. FERROUS SULFATE. [Concomitant]
     Active Substance: FERROUS SULFATE
     Dosage: 325 MG, QD
     Route: 048
     Dates: start: 20181231
  4. FLUOXETINE [Concomitant]
     Active Substance: FLUOXETINE HYDROCHLORIDE
     Dosage: 20 MG, QD
     Route: 048
     Dates: start: 20181231
  5. METOPROLOL. [Concomitant]
     Active Substance: METOPROLOL
     Dosage: 50 MG, UNK
     Route: 048
     Dates: start: 20181230
  6. XARELTO [Concomitant]
     Active Substance: RIVAROXABAN
     Dosage: 20 MG, UNK
     Route: 048
     Dates: start: 20181231
  7. NORMAL SALINE [Concomitant]
     Active Substance: SODIUM CHLORIDE
     Dosage: 10 ML, UNK
     Route: 042
     Dates: start: 20181229
  8. NORMAL SALINE [Concomitant]
     Active Substance: SODIUM CHLORIDE
     Dosage: 10 ML, UNK
     Route: 042
     Dates: start: 20190101
  9. ICY HOT [Concomitant]
     Active Substance: MENTHOL\METHYL SALICYLATE
     Dosage: UNK
     Route: 061
     Dates: start: 20181230
  10. IPRATROPIUM [Concomitant]
     Active Substance: IPRATROPIUM
     Indication: PRODUCT USED FOR UNKNOWN INDICATION
     Dosage: 500 UG (PER 2.5ML), UNK
     Route: 055
     Dates: start: 20181228
  11. IPRATROPIUM [Concomitant]
     Active Substance: IPRATROPIUM
     Dosage: 500 UG (PER 2.5ML), UNK
     Route: 055
     Dates: start: 20181229
  12. FERROUS SULFATE. [Concomitant]
     Active Substance: FERROUS SULFATE
     Indication: PRODUCT USED FOR UNKNOWN INDICATION
     Dosage: 325 MG, QD
     Route: 048
     Dates: start: 20181229
  13. FLUOXETINE [Concomitant]
     Active Substance: FLUOXETINE HYDROCHLORIDE
     Dosage: 20 MG, QD
     Route: 048
     Dates: start: 20190101
  14. HYDRALAZINE [Concomitant]
     Active Substance: HYDRALAZINE HYDROCHLORIDE
     Indication: PRODUCT USED FOR UNKNOWN INDICATION
     Dosage: 2 DF (50MG), UNK
     Route: 048
     Dates: start: 20181228
  15. HYDRALAZINE [Concomitant]
     Active Substance: HYDRALAZINE HYDROCHLORIDE
     Dosage: 2 DF (50MG), UNK
     Route: 048
     Dates: start: 20181230
  16. HYDRALAZINE [Concomitant]
     Active Substance: HYDRALAZINE HYDROCHLORIDE
     Dosage: 2 DF (50MG), UNK
     Route: 048
     Dates: start: 20181231
  17. ISOSORBIDE MONONITRATE. [Concomitant]
     Active Substance: ISOSORBIDE MONONITRATE
     Dosage: 2 DF (60MG), UNK
     Route: 048
     Dates: start: 20181230
  18. ISOSORBIDE MONONITRATE. [Concomitant]
     Active Substance: ISOSORBIDE MONONITRATE
     Dosage: 2 DF (60 MG), UNK
     Route: 048
     Dates: start: 20190101
  19. MAGNESIUM OXIDE. [Concomitant]
     Active Substance: MAGNESIUM OXIDE
     Dosage: 400 MG, QD
     Route: 048
     Dates: start: 20181231
  20. NORCO [Concomitant]
     Active Substance: ACETAMINOPHEN\HYDROCODONE BITARTRATE
     Dosage: 1 DF (325MG/ 5MG), UNK
     Route: 048
     Dates: start: 20181231
  21. ENTRESTO [Suspect]
     Active Substance: SACUBITRIL\VALSARTAN
     Dosage: 1 DF (SACUBITRIL 49 MG/ VALSARTAN 51 MG), UNK
     Route: 048
     Dates: start: 20181230
  22. LASIX [Concomitant]
     Active Substance: FUROSEMIDE
     Dosage: 40 MG/ 4ML, UNK
     Route: 042
     Dates: start: 20181231
  23. IPRATROPIUM [Concomitant]
     Active Substance: IPRATROPIUM
     Dosage: UNK
     Route: 065
     Dates: start: 20181231
  24. HYDRALAZINE [Concomitant]
     Active Substance: HYDRALAZINE HYDROCHLORIDE
     Dosage: 2 DF (50 MG), UNK
     Route: 048
     Dates: start: 20190101
  25. MAGNESIUM OXIDE. [Concomitant]
     Active Substance: MAGNESIUM OXIDE
     Dosage: 400 MG, QD
     Route: 048
     Dates: start: 20190101
  26. LASIX [Concomitant]
     Active Substance: FUROSEMIDE
     Dosage: 40 MG/ 4ML, UNK
     Route: 042
     Dates: start: 20181229
  27. HYDRALAZINE [Concomitant]
     Active Substance: HYDRALAZINE HYDROCHLORIDE
     Dosage: 2 DF (50MG) UNK
     Dates: start: 20181229
  28. MAGNESIUM OXIDE. [Concomitant]
     Active Substance: MAGNESIUM OXIDE
     Indication: PRODUCT USED FOR UNKNOWN INDICATION
     Dosage: 400 MG, QD
     Route: 048
     Dates: start: 20181228
  29. OMEPRAZOLE. [Concomitant]
     Active Substance: OMEPRAZOLE
     Dosage: 2 DF (40MG), UNK
     Route: 048
     Dates: start: 20181231
  30. NORCO [Concomitant]
     Active Substance: ACETAMINOPHEN\HYDROCODONE BITARTRATE
     Dosage: 1 DF (325MG/ 5MG), UNK
     Route: 048
     Dates: start: 20181230
  31. XARELTO [Concomitant]
     Active Substance: RIVAROXABAN
     Indication: PRODUCT USED FOR UNKNOWN INDICATION
     Dosage: 20 MG, UNK
     Route: 048
     Dates: start: 20181228
  32. IMODIUM A-D [Concomitant]
     Active Substance: LOPERAMIDE HYDROCHLORIDE
     Dosage: 2 MG, QD
     Route: 048
     Dates: start: 20181230
  33. LASIX [Concomitant]
     Active Substance: FUROSEMIDE
     Indication: PRODUCT USED FOR UNKNOWN INDICATION
     Dosage: 40 MG/ 4ML, UNK
     Route: 042
     Dates: start: 20181228
  34. NORMAL SALINE [Concomitant]
     Active Substance: SODIUM CHLORIDE
     Indication: PRODUCT USED FOR UNKNOWN INDICATION
     Dosage: 10 ML, UNK
     Route: 042
     Dates: start: 20181228
  35. NORMAL SALINE [Concomitant]
     Active Substance: SODIUM CHLORIDE
     Dosage: 10 ML, UNK
     Route: 042
     Dates: start: 20181231
  36. FAMOTIDINE. [Concomitant]
     Active Substance: FAMOTIDINE
     Indication: PRODUCT USED FOR UNKNOWN INDICATION
     Dosage: 20 MG, QD
     Route: 048
     Dates: start: 20181231
  37. FLUOXETINE [Concomitant]
     Active Substance: FLUOXETINE HYDROCHLORIDE
     Dosage: 20 MG, QD
     Route: 048
     Dates: start: 20181230
  38. MAGNESIUM OXIDE. [Concomitant]
     Active Substance: MAGNESIUM OXIDE
     Dosage: 400 MG, QD
     Route: 048
     Dates: start: 20181230
  39. OMEPRAZOLE. [Concomitant]
     Active Substance: OMEPRAZOLE
     Indication: PRODUCT USED FOR UNKNOWN INDICATION
     Dosage: 2 DF (40MG), UNK
     Route: 048
     Dates: start: 20181229
  40. XARELTO [Concomitant]
     Active Substance: RIVAROXABAN
     Dosage: 20 MG, UNK
     Route: 048
     Dates: start: 20181230
  41. ENTRESTO [Suspect]
     Active Substance: SACUBITRIL\VALSARTAN
     Dosage: 1 DF (SACUBITRIL 49 MG/ VALSARTAN 51 MG), UNK
     Route: 048
     Dates: start: 20181231
  42. LASIX [Concomitant]
     Active Substance: FUROSEMIDE
     Dosage: 40 MG/ 4ML, UNK
     Route: 042
     Dates: start: 20181230
  43. ICY HOT [Concomitant]
     Active Substance: MENTHOL\METHYL SALICYLATE
     Dosage: UNK
     Route: 061
     Dates: start: 20181231
  44. METOPROLOL. [Concomitant]
     Active Substance: METOPROLOL
     Indication: PRODUCT USED FOR UNKNOWN INDICATION
     Dosage: 50 MG, UNK
     Route: 048
     Dates: start: 20181229
  45. METOPROLOL. [Concomitant]
     Active Substance: METOPROLOL
     Dosage: 50 MG, UNK
     Route: 048
     Dates: start: 20190101
  46. IMODIUM A-D [Concomitant]
     Active Substance: LOPERAMIDE HYDROCHLORIDE
     Indication: DIARRHOEA
     Dosage: 2 MG, QD
     Route: 048
     Dates: start: 20181228
  47. IMODIUM A-D [Concomitant]
     Active Substance: LOPERAMIDE HYDROCHLORIDE
     Dosage: 2 MG, QD
     Route: 048
     Dates: start: 20181229
  48. ENTRESTO [Suspect]
     Active Substance: SACUBITRIL\VALSARTAN
     Indication: PRODUCT USED FOR UNKNOWN INDICATION
     Dosage: 1 DF (SACUBITRIL 49 MG/ VALSARTAN 51 MG), UNK
     Route: 048
     Dates: start: 20181229
  49. ENTRESTO [Suspect]
     Active Substance: SACUBITRIL\VALSARTAN
     Dosage: 1 DF (SACUBITRIL 49 MG/ VALSARTAN 51 MG), UNK
     Route: 048
     Dates: start: 20190101
  50. NORMAL SALINE [Concomitant]
     Active Substance: SODIUM CHLORIDE
     Dosage: 10 ML, UNK
     Route: 042
     Dates: start: 20181230
  51. IPRATROPIUM [Concomitant]
     Active Substance: IPRATROPIUM
     Dosage: 500 UG (PER 2.5ML), UNK
     Route: 055
     Dates: start: 20181230
  52. FLUOXETINE [Concomitant]
     Active Substance: FLUOXETINE HYDROCHLORIDE
     Indication: PRODUCT USED FOR UNKNOWN INDICATION
     Dosage: 20 MG, QD
     Route: 048
     Dates: start: 20181229
  53. ISOSORBIDE MONONITRATE. [Concomitant]
     Active Substance: ISOSORBIDE MONONITRATE
     Indication: PRODUCT USED FOR UNKNOWN INDICATION
     Dosage: 2 DF (60MG), UNK
     Route: 048
     Dates: start: 20181229
  54. MAGNESIUM OXIDE. [Concomitant]
     Active Substance: MAGNESIUM OXIDE
     Dosage: 400 MG, QD
     Route: 048
     Dates: start: 20181229
  55. NORCO [Concomitant]
     Active Substance: ACETAMINOPHEN\HYDROCODONE BITARTRATE
     Indication: PAIN
     Dosage: 1 DF (325MG/ 5MG), UNK
     Route: 048
     Dates: start: 20181229
  56. XARELTO [Concomitant]
     Active Substance: RIVAROXABAN
     Dosage: 20 MG, UNK
     Route: 048
     Dates: start: 20181229
  57. IMODIUM A-D [Concomitant]
     Active Substance: LOPERAMIDE HYDROCHLORIDE
     Dosage: 2 MG, QD
     Route: 048
     Dates: start: 20181231
  58. DEPO MEDRONE+LIDOCAINE [Concomitant]
     Indication: PRODUCT USED FOR UNKNOWN INDICATION
     Dosage: 1 DF (20MG/ 80MG/ 5MG), UNK
     Route: 014
     Dates: start: 20181228
  59. LASIX [Concomitant]
     Active Substance: FUROSEMIDE
     Dosage: 40 MG/ 4ML, UNK
     Route: 042
     Dates: start: 20190101
  60. ICY HOT [Concomitant]
     Active Substance: MENTHOL\METHYL SALICYLATE
     Indication: ARTHRITIS
     Dosage: UNK
     Route: 061
     Dates: start: 20181229
  61. ICY HOT [Concomitant]
     Active Substance: MENTHOL\METHYL SALICYLATE
     Dosage: UNK
     Route: 061
     Dates: start: 20190101
  62. IPRATROPIUM [Concomitant]
     Active Substance: IPRATROPIUM
     Dosage: UNK
     Route: 065
     Dates: start: 20190101
  63. FERROUS SULFATE. [Concomitant]
     Active Substance: FERROUS SULFATE
     Dosage: 325 MG, QD
     Route: 048
     Dates: start: 20190101
  64. ISOSORBIDE MONONITRATE. [Concomitant]
     Active Substance: ISOSORBIDE MONONITRATE
     Dosage: 2 DF (60MG), UNK
     Route: 048
     Dates: start: 20181231
  65. METOPROLOL. [Concomitant]
     Active Substance: METOPROLOL
     Dosage: 50 MG, UNK
     Route: 048
     Dates: start: 20181231
  66. OMEPRAZOLE. [Concomitant]
     Active Substance: OMEPRAZOLE
     Dosage: 2 DF (40MG), UNK
     Route: 048
     Dates: start: 20181230
  67. OMEPRAZOLE. [Concomitant]
     Active Substance: OMEPRAZOLE
     Dosage: 2 DF (40MG), UNK
     Route: 048
     Dates: start: 20190101

REACTIONS (1)
  - Cardiac failure congestive [Recovering/Resolving]
